FAERS Safety Report 7904247-9 (Version None)
Quarter: 2011Q4

REPORT INFORMATION
  Report Type: 
  Country: None (occurrence: None)
  Receive Date: 20111109
  Receipt Date: 20111031
  Transmission Date: 20120403
  Serious: Yes (Other)
  Sender: FDA-Public Use
  Company Number: US-BAYER-2011-028250

PATIENT
  Age: 19 Year
  Sex: Female
  Weight: 104 kg

DRUGS (7)
  1. ALBUTEROL SULFATE [Concomitant]
     Indication: PREMENSTRUAL SYNDROME
     Dosage: UNK
     Dates: start: 20080101, end: 20090101
  2. YAZ [Suspect]
  3. YAZ [Suspect]
     Indication: PREMENSTRUAL SYNDROME
     Dosage: UNK
     Dates: start: 20080731, end: 20091021
  4. NEXIUM [Concomitant]
  5. IBUPROFEN [Concomitant]
  6. SINGULAIR [Concomitant]
  7. ALBUTEROL SULFATE [Concomitant]

REACTIONS (9)
  - GALLBLADDER DISORDER [None]
  - BILIARY DYSKINESIA [None]
  - EMOTIONAL DISTRESS [None]
  - PAIN [None]
  - DECREASED APPETITE [None]
  - NAUSEA [None]
  - VOMITING [None]
  - ANHEDONIA [None]
  - ABDOMINAL PAIN UPPER [None]
